FAERS Safety Report 13648035 (Version 1)
Quarter: 2017Q2

REPORT INFORMATION
  Report Type: Spontaneous
  Country: CH (occurrence: CH)
  Receive Date: 20170613
  Receipt Date: 20170613
  Transmission Date: 20170830
  Serious: Yes (Death)
  Sender: FDA-Public Use
  Company Number: CH-BAYER-2017-105795

PATIENT
  Age: 78 Year
  Sex: Male

DRUGS (12)
  1. ATORVASTATIN [Concomitant]
     Active Substance: ATORVASTATIN
     Dosage: 40 MG, QD
  2. LOSARTAN. [Concomitant]
     Active Substance: LOSARTAN
     Dosage: 50 MG, BID
  3. ASPIRIN CARDIO 100 MG [Suspect]
     Active Substance: ASPIRIN
     Dosage: 100 MG, QD
  4. LYRICA [Concomitant]
     Active Substance: PREGABALIN
     Dosage: 25 MG, BID
  5. MOVICOL [Concomitant]
     Active Substance: POLYETHYLENE GLYCOL 3350\POTASSIUM CHLORIDE\SODIUM BICARBONATE\SODIUM CHLORIDE
     Dosage: UNK
  6. NOVALGIN [Concomitant]
     Active Substance: METAMIZOLE SODIUM
     Indication: ANALGESIC THERAPY
     Dosage: 500 MG, PRN
  7. TRITTICO [Concomitant]
     Active Substance: TRAZODONE HYDROCHLORIDE
     Dosage: 2 DF, QD
  8. CAPTOPRIL-MEPHA [Concomitant]
     Indication: HYPERTENSION
     Dosage: 12.5 MG, UNK
  9. TORASEMID [Concomitant]
     Active Substance: TORSEMIDE
     Dosage: 10 MG, QD
  10. PANTOZOL [Concomitant]
     Active Substance: PANTOPRAZOLE SODIUM
     Dosage: 40 MG, QD
  11. SPASMO-URGENIN NEO [Concomitant]
     Active Substance: TROSPIUM
     Dosage: UNK, QD
  12. LAXOBERON [Concomitant]
     Active Substance: SODIUM PICOSULFATE
     Dosage: UNK

REACTIONS (5)
  - Pupils unequal [Fatal]
  - Basal ganglia haemorrhage [Fatal]
  - Cerebral ventricular rupture [Fatal]
  - Intraventricular haemorrhage [Fatal]
  - Coma scale abnormal [Fatal]

NARRATIVE: CASE EVENT DATE: 20170216
